FAERS Safety Report 4873389-7 (Version None)
Quarter: 2006Q1

REPORT INFORMATION
  Report Type: 
  Country: None (occurrence: None)
  Receive Date: 20060105
  Receipt Date: 20051110
  Transmission Date: 20060701
  Serious: Yes (Hospitalization)
  Sender: FDA-Public Use
  Company Number: JP-BRISTOL-MYERS SQUIBB COMPANY-13206214

PATIENT
  Age: 78 Year
  Sex: Female

DRUGS (9)
  1. MAXIPIME [Suspect]
     Indication: PNEUMONIA
     Route: 041
     Dates: start: 20051109, end: 20051110
  2. RIFAMPICIN [Suspect]
     Route: 048
     Dates: start: 20051101, end: 20051111
  3. EBUTOL [Suspect]
     Route: 048
     Dates: start: 20051101, end: 20051111
  4. CLARITHROMYCIN [Suspect]
     Route: 048
     Dates: start: 20051101, end: 20051111
  5. RIZE [Concomitant]
     Route: 048
  6. PARIET [Concomitant]
     Route: 048
  7. FERROMIA [Concomitant]
     Route: 048
  8. CYANOCOBALAMIN [Concomitant]
     Route: 048
  9. MARZULENE-S [Concomitant]
     Route: 048

REACTIONS (2)
  - DYSPNOEA [None]
  - PRURITUS [None]
